FAERS Safety Report 9817883 (Version 1)
Quarter: 2013Q4

REPORT INFORMATION
  Report Type: Spontaneous
  Country: US (occurrence: None)
  Receive Date: 20131223
  Receipt Date: 20131223
  Transmission Date: 20140711
  Serious: No
  Sender: FDA-Public Use
  Company Number: 218599

PATIENT
  Age: 19 Year
  Sex: Male

DRUGS (5)
  1. PICATO [Suspect]
     Indication: PRECANCEROUS CELLS PRESENT
     Dosage: 1 IN 1 D
     Route: 061
     Dates: start: 20120808, end: 20120810
  2. IMURAN (AZATHIOPRINE) [Concomitant]
  3. PROGRAF (TACROLIMUS) [Concomitant]
  4. PREDNISONE (PREDNISONE) [Concomitant]
  5. CYCLOSPORINE (CICLOSPORIN) [Concomitant]

REACTIONS (3)
  - Application site erythema [None]
  - Application site exfoliation [None]
  - Application site pain [None]
